FAERS Safety Report 9379443 (Version 1)
Quarter: 2013Q3

REPORT INFORMATION
  Report Type: Spontaneous
  Country: NL (occurrence: NL)
  Receive Date: 20130702
  Receipt Date: 20130702
  Transmission Date: 20140515
  Serious: Yes (Other)
  Sender: FDA-Public Use
  Company Number: NL-JNJFOC-20130619457

PATIENT
  Sex: 0

DRUGS (7)
  1. DOXORUBICIN HYDROCHLORIDE [Suspect]
     Indication: OVARIAN CANCER
     Dosage: DAY 1
     Route: 042
  2. ATRASENTAN [Suspect]
     Indication: OVARIAN CANCER
     Route: 048
  3. ATRASENTAN [Suspect]
     Indication: OVARIAN CANCER
     Dosage: THE STARTING DOSE WAS 2.5 MG AND ESCALATED TO 5 MG AND LATER TO A MAXIMUM OF 10 MG, REDUCED TO 5 MG
     Route: 048
  4. ATRASENTAN [Suspect]
     Indication: OVARIAN CANCER
     Route: 048
  5. DEXAMETHASONE [Concomitant]
     Indication: PROPHYLAXIS
     Route: 065
  6. RANITIDINE [Concomitant]
     Indication: PROPHYLAXIS
     Route: 065
  7. TAVEGIL [Concomitant]
     Indication: PROPHYLAXIS
     Route: 065

REACTIONS (14)
  - Rhinitis [Unknown]
  - Anaemia [Unknown]
  - Leukopenia [Unknown]
  - Thrombocytopenia [Unknown]
  - Nausea [Unknown]
  - Vomiting [Unknown]
  - Mucosal inflammation [Unknown]
  - Decreased appetite [Unknown]
  - Headache [Unknown]
  - Hyponatraemia [Unknown]
  - Hypokalaemia [Unknown]
  - Hypoalbuminaemia [Unknown]
  - Blood creatinine increased [Unknown]
  - Palmar-plantar erythrodysaesthesia syndrome [Unknown]
